FAERS Safety Report 8274646-7 (Version None)
Quarter: 2012Q2

REPORT INFORMATION
  Report Type: 
  Country: None (occurrence: None)
  Receive Date: 20120411
  Receipt Date: 20120403
  Transmission Date: 20120825
  Serious: Yes (Hospitalization)
  Sender: FDA-Public Use
  Company Number: US-VIIV HEALTHCARE LIMITED-B0692992A

PATIENT
  Age: 52 Year
  Sex: Male

DRUGS (24)
  1. MARAVIROC [Suspect]
     Indication: HIV INFECTION
     Dosage: 600MG TWICE PER DAY
     Route: 048
     Dates: start: 20101118
  2. CEVIMELINE [Concomitant]
     Dates: start: 20080610
  3. ROSUVASTATIN [Concomitant]
     Dates: start: 20080610
  4. FLUTICASONE FUROATE [Concomitant]
  5. CLONIDINE [Concomitant]
     Dates: start: 20101019
  6. ALBUTEROL [Concomitant]
     Dates: start: 20091211
  7. OLMESARTAN MEDOXOMIL [Concomitant]
     Dates: start: 20091211
  8. DECA-DURABOLIN [Concomitant]
     Dates: start: 20090202
  9. ESOMEPRAZOLE MAGNESIUM [Concomitant]
     Dates: start: 20080508
  10. BUPROPION HCL [Concomitant]
     Dates: start: 20061011
  11. ETRAVIRINE [Suspect]
     Indication: HIV INFECTION
     Route: 048
     Dates: start: 20101118
  12. LEVOTHYROXINE SODIUM [Concomitant]
     Dates: start: 20101019
  13. CHLORPROMAZINE [Concomitant]
     Dates: start: 20100602
  14. LEVOCETIRIZINE DIHYDROCHLORIDE [Concomitant]
     Dates: start: 20090202
  15. NEBIVOLOL [Concomitant]
     Dates: start: 20091211
  16. PREGABALIN [Concomitant]
     Dates: start: 20071210
  17. TADALAFIL [Concomitant]
     Dates: start: 20100806
  18. ZOFRAN [Concomitant]
  19. RALTEGRAVIR [Suspect]
     Indication: HIV INFECTION
     Route: 048
     Dates: start: 20101118
  20. DEPO-TESTOSTERONE [Concomitant]
     Dates: start: 20101019
  21. MIRTAZAPINE [Concomitant]
     Dates: start: 20080303
  22. FENOFIBRATE [Concomitant]
     Dates: start: 20080610
  23. ADVAIR DISKUS 100/50 [Concomitant]
     Dates: start: 20080414
  24. OXYBUTYNIN [Concomitant]
     Dates: start: 20061011

REACTIONS (2)
  - BLOOD CREATINE PHOSPHOKINASE INCREASED [None]
  - BLOOD POTASSIUM DECREASED [None]
